FAERS Safety Report 4697940-5 (Version None)
Quarter: 2005Q2

REPORT INFORMATION
  Report Type: 
  Country: None (occurrence: None)
  Receive Date: 20050623
  Receipt Date: 20040720
  Transmission Date: 20051028
  Serious: Yes (Hospitalization)
  Sender: FDA-Public Use
  Company Number: FR-BOEHRINGER INGELHEIM PHARMACEUTICALS, INC.-2004-FF-00435FF

PATIENT
  Age: 45 Year
  Sex: Male
  Weight: 60 kg

DRUGS (6)
  1. VIRAMUNE [Suspect]
     Indication: HIV INFECTION
     Route: 048
     Dates: end: 20040304
  2. BACTRIM [Concomitant]
     Route: 048
     Dates: end: 20040304
  3. EPIVIR [Concomitant]
     Indication: HIV INFECTION
     Route: 048
     Dates: end: 20040304
  4. ZERIT [Concomitant]
     Indication: HIV INFECTION
     Route: 048
     Dates: end: 20040304
  5. MALOCIDE [Concomitant]
  6. DALACINE [Concomitant]

REACTIONS (1)
  - PANCYTOPENIA [None]
